FAERS Safety Report 8118090-1 (Version None)
Quarter: 2012Q1

REPORT INFORMATION
  Report Type: 
  Country: None (occurrence: None)
  Receive Date: 20120207
  Receipt Date: 20120201
  Transmission Date: 20120608
  Serious: No
  Sender: FDA-Public Use
  Company Number: US-PFIZER INC-2012029215

PATIENT

DRUGS (2)
  1. PANTOPRAZOLE [Suspect]
     Indication: GASTRINOMA
     Dosage: 40 MG, 2X/DAY
  2. RANITIDINE [Interacting]
     Indication: GASTRINOMA
     Dosage: 150 MG, UNK

REACTIONS (2)
  - DRUG INTERACTION [None]
  - DRUG EFFECT DECREASED [None]
